FAERS Safety Report 4840037-1 (Version None)
Quarter: 2005Q4

REPORT INFORMATION
  Report Type: 
  Country: None (occurrence: None)
  Receive Date: 20051125
  Receipt Date: 20051108
  Transmission Date: 20060501
  Serious: Yes (Other)
  Sender: FDA-Public Use
  Company Number: CN-2005-023276

PATIENT
  Age: 61 Year
  Sex: Male
  Weight: 55 kg

DRUGS (1)
  1. ULTRAVIST 370 [Suspect]
     Indication: ARTERIOGRAM CORONARY
     Dosage: 75 ML, 4.3 ML/S; INTRAVENOUS
     Route: 042
     Dates: start: 20051105, end: 20051105

REACTIONS (2)
  - COMA [None]
  - PROCEDURAL COMPLICATION [None]
